FAERS Safety Report 17264288 (Version 1)
Quarter: 2020Q1

REPORT INFORMATION
  Report Type: Spontaneous
  Country: US (occurrence: US)
  Receive Date: 20200113
  Receipt Date: 20200113
  Transmission Date: 20200409
  Serious: No
  Sender: FDA-Public Use
  Company Number: NVSC2020US005631

PATIENT
  Age: 76 Year
  Sex: Female

DRUGS (1)
  1. NITROFURANTOIN CAPSULES USP [Suspect]
     Active Substance: NITROFURANTOIN
     Indication: URINARY TRACT INFECTION
     Dosage: UNK
     Route: 065

REACTIONS (9)
  - Migraine [Recovered/Resolved]
  - Myalgia [Recovered/Resolved]
  - Dry mouth [Not Recovered/Not Resolved]
  - Peripheral swelling [Not Recovered/Not Resolved]
  - Nausea [Recovered/Resolved]
  - Influenza like illness [Recovered/Resolved]
  - Pruritus [Unknown]
  - Bone swelling [Not Recovered/Not Resolved]
  - Joint swelling [Not Recovered/Not Resolved]
